FAERS Safety Report 10155433 (Version 2)
Quarter: 2014Q2

REPORT INFORMATION
  Report Type: Spontaneous
  Country: US (occurrence: US)
  Receive Date: 20140506
  Receipt Date: 20140516
  Transmission Date: 20141212
  Serious: Yes (Death)
  Sender: FDA-Public Use
  Company Number: US-ACTELION-A-NJ2014-98471

PATIENT
  Age: 57 Year
  Sex: Female

DRUGS (4)
  1. OPSUMIT [Suspect]
     Indication: PULMONARY ARTERIAL HYPERTENSION
     Dosage: 10 MG, QD
     Route: 048
     Dates: start: 20140322, end: 20140421
  2. REVATIO [Concomitant]
  3. WARFARIN [Concomitant]
  4. TYVASO [Concomitant]

REACTIONS (1)
  - Death [Fatal]
